FAERS Safety Report 5845054-0 (Version None)
Quarter: 2008Q3

REPORT INFORMATION
  Report Type: 
  Country: None (occurrence: None)
  Receive Date: 20080814
  Receipt Date: 20080804
  Transmission Date: 20090109
  Serious: Yes (Hospitalization)
  Sender: FDA-Public Use
  Company Number: US-JNJFOC-20080801444

PATIENT
  Sex: Female
  Weight: 53.52 kg

DRUGS (2)
  1. DURAGESIC-100 [Suspect]
     Dosage: 2X 50 UG/HR PATCHES
     Route: 062
  2. DURAGESIC-100 [Suspect]
     Indication: PAIN
     Route: 062

REACTIONS (8)
  - ANXIETY [None]
  - CROHN'S DISEASE [None]
  - HEPATIC ENZYME INCREASED [None]
  - OVERDOSE [None]
  - PANCREATITIS [None]
  - THERAPEUTIC RESPONSE DECREASED [None]
  - THYROID DISORDER [None]
  - WEIGHT DECREASED [None]
